FAERS Safety Report 8266448-2 (Version None)
Quarter: 2012Q2

REPORT INFORMATION
  Report Type: 
  Country: None (occurrence: None)
  Receive Date: 20120406
  Receipt Date: 20120404
  Transmission Date: 20120825
  Serious: Yes (Hospitalization)
  Sender: FDA-Public Use
  Company Number: GB-MERCK-1203GBR00050

PATIENT
  Sex: Male

DRUGS (6)
  1. JANUVIA [Suspect]
     Route: 048
  2. ASPIRIN [Concomitant]
     Route: 065
  3. SIMVASTATIN [Concomitant]
     Route: 048
  4. BISOPROLOL [Concomitant]
     Route: 065
  5. METFORMIN [Concomitant]
     Route: 065
  6. RAMIPRIL [Concomitant]
     Route: 065

REACTIONS (2)
  - OESOPHAGEAL CARCINOMA [None]
  - GASTROINTESTINAL DISORDER [None]
